FAERS Safety Report 9504210 (Version 1)
Quarter: 2013Q3

REPORT INFORMATION
  Report Type: Spontaneous
  Country: CA (occurrence: CA)
  Receive Date: 20130906
  Receipt Date: 20130906
  Transmission Date: 20140515
  Serious: Yes (Other)
  Sender: FDA-Public Use
  Company Number: CA-GLAXOSMITHKLINE-A1039924B

PATIENT
  Sex: 0

DRUGS (2)
  1. VENTOLIN [Suspect]
     Indication: ASTHMA
     Route: 064
  2. ADVAIR [Suspect]
     Indication: ASTHMA
     Route: 064

REACTIONS (2)
  - Epilepsy [Unknown]
  - Foetal exposure during pregnancy [Unknown]
